FAERS Safety Report 11892211 (Version 5)
Quarter: 2017Q1

REPORT INFORMATION
  Report Type: Spontaneous
  Country: US (occurrence: US)
  Receive Date: 20160106
  Receipt Date: 20170223
  Transmission Date: 20170428
  Serious: Yes (Hospitalization)
  Sender: FDA-Public Use
  Company Number: US-PFIZER INC-2016002035

PATIENT
  Age: 49 Year
  Sex: Female
  Weight: 56 kg

DRUGS (12)
  1. VERAPAMIL [Concomitant]
     Active Substance: VERAPAMIL HYDROCHLORIDE
     Indication: ATRIAL FIBRILLATION
  2. MORPHINE SULFATE. [Concomitant]
     Active Substance: MORPHINE SULFATE
     Indication: SURGERY
     Dosage: UNK
     Dates: start: 2003
  3. NEXIUM [Concomitant]
     Active Substance: ESOMEPRAZOLE MAGNESIUM
     Indication: HIATUS HERNIA
     Dosage: 40 MG, DAILY
     Route: 048
     Dates: start: 1990
  4. DETROL LA [Concomitant]
     Active Substance: TOLTERODINE TARTRATE
     Indication: CYSTITIS INTERSTITIAL
     Dosage: 4 MG, DAILY
     Route: 048
     Dates: start: 2000
  5. DICYCLOMINE [Concomitant]
     Active Substance: DICYCLOMINE HYDROCHLORIDE
     Indication: GASTROINTESTINAL TRACT IRRITATION
     Dosage: 10 MG, UNK (ONE TO TWO TABLETS MOUTH TWICE A DAY)
     Route: 048
     Dates: end: 201602
  6. VERAPAMIL [Concomitant]
     Active Substance: VERAPAMIL HYDROCHLORIDE
     Indication: DYSPEPSIA
     Dosage: 40 MG, 2X/DAY
     Route: 048
     Dates: start: 2002, end: 201611
  7. EFFEXOR XR [Suspect]
     Active Substance: VENLAFAXINE HYDROCHLORIDE
     Indication: PANIC ATTACK
     Dosage: 150 MG, 1X/DAY
     Route: 048
  8. TOLTERODINE TART ER [Concomitant]
     Indication: CYSTITIS INTERSTITIAL
     Dosage: 4 MG, DAILY
     Route: 048
     Dates: start: 2015
  9. EFFEXOR XR [Suspect]
     Active Substance: VENLAFAXINE HYDROCHLORIDE
     Indication: DEPRESSION
     Dosage: 37.5 MG, UNK
     Route: 048
     Dates: start: 2002
  10. EFFEXOR XR [Suspect]
     Active Substance: VENLAFAXINE HYDROCHLORIDE
     Indication: ANXIETY
     Dosage: 75 MG, UNK
     Route: 048
  11. ALPRAZOLAM. [Concomitant]
     Active Substance: ALPRAZOLAM
     Dosage: 1 MG, 2X/DAY
     Route: 048
     Dates: start: 1990
  12. VERAPAMIL [Concomitant]
     Active Substance: VERAPAMIL HYDROCHLORIDE
     Indication: PALPITATIONS

REACTIONS (6)
  - Drug withdrawal syndrome [Recovered/Resolved]
  - Sleep disorder [Recovered/Resolved]
  - Headache [Recovered/Resolved]
  - Anxiety [Recovered/Resolved]
  - Nightmare [Recovered/Resolved]
  - Night sweats [Recovered/Resolved]

NARRATIVE: CASE EVENT DATE: 2003
